FAERS Safety Report 6171277-X (Version None)
Quarter: 2009Q2

REPORT INFORMATION
  Report Type: 
  Country: None (occurrence: None)
  Receive Date: 20090428
  Receipt Date: 20090428
  Transmission Date: 20091009
  Serious: Yes (Disabling)
  Sender: FDA-Public Use
  Company Number: None

PATIENT
  Age: 26 Year
  Sex: Female
  Weight: 64.4108 kg

DRUGS (2)
  1. TOPIRAMATE [Suspect]
     Indication: PROPHYLAXIS
     Dosage: 25 MG DAILY PO
     Route: 048
     Dates: start: 20090413, end: 20090420
  2. TOPIRAMATE [Suspect]
     Indication: TENSION HEADACHE
     Dosage: 25 MG DAILY PO
     Route: 048
     Dates: start: 20090413, end: 20090420

REACTIONS (1)
  - ANGLE CLOSURE GLAUCOMA [None]
